FAERS Safety Report 23494404 (Version 1)
Quarter: 2024Q1

REPORT INFORMATION
  Report Type: Spontaneous
  Country: US (occurrence: US)
  Receive Date: 20240207
  Receipt Date: 20240207
  Transmission Date: 20240410
  Serious: No
  Sender: FDA-Public Use
  Company Number: -ORACLE-2004EN000023

PATIENT

DRUGS (3)
  1. ABELCET [Suspect]
     Active Substance: AMPHOTERICIN B\DIMYRISTOYLPHOSPHATIDYLCHOLINE, DL-\DIMYRISTOYLPHOSPHATIDYLGLYCEROL, DL-
     Indication: Fungal infection
     Dosage: 550 MILLIGRAM
     Route: 042
     Dates: start: 20030616, end: 20030616
  2. HYDROCORTISONE [Suspect]
     Active Substance: HYDROCORTISONE
     Indication: Premedication
     Dosage: 100 MILLIGRAM
     Route: 042
     Dates: start: 20030616, end: 20030616
  3. TYLENOL [Suspect]
     Active Substance: ACETAMINOPHEN
     Indication: Premedication
     Dosage: 650 MILLIGRAM
     Route: 048
     Dates: start: 20030616, end: 20030616

REACTIONS (2)
  - Hypoaesthesia oral [Unknown]
  - Blood creatinine decreased [Unknown]
